FAERS Safety Report 22350438 (Version 1)
Quarter: 2023Q2

REPORT INFORMATION
  Report Type: Spontaneous
  Country: US (occurrence: None)
  Receive Date: 20230520
  Receipt Date: 20230520
  Transmission Date: 20230721
  Serious: Yes (Other)
  Sender: FDA-Public Use
  Company Number: None

PATIENT
  Age: 44 Year
  Sex: Female
  Weight: 63 kg

DRUGS (3)
  1. GLATIRAMER ACETATE [Suspect]
     Active Substance: GLATIRAMER ACETATE
     Indication: Multiple sclerosis
     Dosage: OTHER QUANTITY : 1 INJECTION(S);?OTHER FREQUENCY : 3 TIMES/WEEK;?
     Route: 058
  2. MAGNESIUM [Concomitant]
     Active Substance: MAGNESIUM
  3. chaste tree [Concomitant]

REACTIONS (7)
  - Nausea [None]
  - Palpitations [None]
  - Respiratory rate increased [None]
  - Abdominal pain upper [None]
  - Back pain [None]
  - Hyperhidrosis [None]
  - Post procedural complication [None]

NARRATIVE: CASE EVENT DATE: 20230518
